FAERS Safety Report 6418406-8 (Version None)
Quarter: 2009Q4

REPORT INFORMATION
  Report Type: 
  Country: None (occurrence: None)
  Receive Date: 20091026
  Receipt Date: 20091013
  Transmission Date: 20100525
  Serious: Yes (Hospitalization)
  Sender: FDA-Public Use
  Company Number: ADR37472009

PATIENT
  Age: 62 Year
  Sex: Male

DRUGS (7)
  1. SIMVASTATIN [Suspect]
     Indication: BLOOD CHOLESTEROL INCREASED
     Dosage: 40 MG DAILY, ORAL
     Route: 048
     Dates: start: 20071119
  2. ASPIRIN [Concomitant]
  3. ATENOLOL [Concomitant]
  4. BENDROFLUMETHIAZIDE [Concomitant]
  5. CLOPIDOGREL [Concomitant]
  6. ISOSORBIDE MONONITRATE [Concomitant]
  7. RAMIPRIL [Concomitant]

REACTIONS (1)
  - RHABDOMYOLYSIS [None]
